FAERS Safety Report 6754039-1 (Version None)
Quarter: 2010Q2

REPORT INFORMATION
  Report Type: 
  Country: None (occurrence: None)
  Receive Date: 20100603
  Receipt Date: 20100519
  Transmission Date: 20101027
  Serious: Yes (Other)
  Sender: FDA-Public Use
  Company Number: IT-CUBIST-2010S1000298

PATIENT
  Age: 45 Year
  Sex: Male

DRUGS (1)
  1. CUBICIN [Suspect]
     Indication: WOUND DEHISCENCE
     Route: 042
     Dates: start: 20100513, end: 20100513

REACTIONS (2)
  - LARYNGEAL OEDEMA [None]
  - RESPIRATORY FAILURE [None]
